FAERS Safety Report 8097623-8 (Version None)
Quarter: 2012Q1

REPORT INFORMATION
  Report Type: 
  Country: None (occurrence: None)
  Receive Date: 20120128
  Receipt Date: 20110706
  Transmission Date: 20120608
  Serious: No
  Sender: FDA-Public Use
  Company Number: US-ABBOTT-11P-163-0836351-00

PATIENT
  Sex: Female
  Weight: 72.64 kg

DRUGS (5)
  1. TINDAMAX [Concomitant]
     Indication: LYME DISEASE
  2. CYMBALTA [Concomitant]
     Indication: PSORIATIC ARTHROPATHY
     Dates: start: 20110301
  3. HUMIRA [Suspect]
     Indication: RHEUMATOID ARTHRITIS
     Route: 058
     Dates: start: 20110520
  4. AZOR [Concomitant]
     Indication: HYPERTENSION
  5. HUMIRA [Suspect]
     Indication: PSORIATIC ARTHROPATHY

REACTIONS (4)
  - INJECTION SITE HAEMORRHAGE [None]
  - INJECTION SITE DISCOLOURATION [None]
  - WRONG TECHNIQUE IN DRUG USAGE PROCESS [None]
  - INCORRECT DOSE ADMINISTERED [None]
